FAERS Safety Report 8385697-6 (Version None)
Quarter: 2012Q2

REPORT INFORMATION
  Report Type: 
  Country: None (occurrence: None)
  Receive Date: 20120523
  Receipt Date: 20120507
  Transmission Date: 20120825
  Serious: Yes (Hospitalization)
  Sender: FDA-Public Use
  Company Number: GER/ITL/12/0023748

PATIENT
  Age: 73 Year
  Sex: Male

DRUGS (11)
  1. CONGESCOR (BISOPROLOL) [Concomitant]
  2. GLUCOBAY [Concomitant]
  3. ROCALTROL [Concomitant]
  4. METFORMIN HCL [Concomitant]
  5. LORTAAN (LOSARTAN POTASSIUM) [Concomitant]
  6. NORVASC [Concomitant]
  7. ASPIRIN [Concomitant]
  8. ESKIM (OMEGA-3 TRIGLYCERIDES) [Concomitant]
  9. ALLOPURINOL [Concomitant]
  10. CLOPIDEGREL [Suspect]
     Indication: ACUTE CORONARY SYNDROME
     Dosage: 75 MG, 1 IN 1 D, ORAL
     Route: 048
     Dates: start: 20120318, end: 20120321
  11. CRESTOR [Concomitant]

REACTIONS (1)
  - THROMBOCYTOPENIA [None]
